FAERS Safety Report 19824819 (Version 1)
Quarter: 2021Q3

REPORT INFORMATION
  Report Type: Spontaneous
  Country: US (occurrence: US)
  Receive Date: 20210913
  Receipt Date: 20210913
  Transmission Date: 20211014
  Serious: Yes (Hospitalization)
  Sender: FDA-Public Use
  Company Number: None

PATIENT
  Sex: Male

DRUGS (15)
  1. TRULICITY [Concomitant]
     Active Substance: DULAGLUTIDE
  2. GABAPENTIN. [Concomitant]
     Active Substance: GABAPENTIN
  3. ATORVASTATIN [Concomitant]
     Active Substance: ATORVASTATIN
  4. METOPROLOL. [Concomitant]
     Active Substance: METOPROLOL
  5. SILDENAFIL. [Concomitant]
     Active Substance: SILDENAFIL
  6. DIAZEPAM. [Concomitant]
     Active Substance: DIAZEPAM
  7. MELOXICAM. [Concomitant]
     Active Substance: MELOXICAM
  8. TORSEMIDE. [Concomitant]
     Active Substance: TORSEMIDE
  9. OMEPRAZOLE. [Concomitant]
     Active Substance: OMEPRAZOLE
  10. CIMZIA [Suspect]
     Active Substance: CERTOLIZUMAB PEGOL
     Indication: ANKYLOSING SPONDYLITIS
     Dosage: ?          OTHER FREQUENCY:MONTHLY;?
     Route: 058
     Dates: start: 20201129
  11. POT CHLORIDE [Concomitant]
     Active Substance: POTASSIUM CHLORIDE
  12. ENTRESTO [Concomitant]
     Active Substance: SACUBITRIL\VALSARTAN
  13. LATANOPROST. [Concomitant]
     Active Substance: LATANOPROST
  14. METFORMIN [Concomitant]
     Active Substance: METFORMIN HYDROCHLORIDE
  15. PHENTERMINE. [Concomitant]
     Active Substance: PHENTERMINE

REACTIONS (1)
  - Hospitalisation [None]
